FAERS Safety Report 18877834 (Version 2)
Quarter: 2022Q3

REPORT INFORMATION
  Report Type: Spontaneous
  Country: US (occurrence: US)
  Receive Date: 20210211
  Receipt Date: 20220824
  Transmission Date: 20221026
  Serious: Yes (Other)
  Sender: FDA-Public Use
  Company Number: US-SA-SAC20210205000427

PATIENT
  Age: 43 Year
  Sex: Female

DRUGS (2)
  1. ZANTAC [Suspect]
     Active Substance: RANITIDINE HYDROCHLORIDE
     Indication: Dyspepsia
     Dosage: 75 MG, QW
     Route: 065
     Dates: start: 198601
  2. ZANTAC [Suspect]
     Active Substance: RANITIDINE HYDROCHLORIDE
     Dosage: 150 MG, QW
     Route: 065
     Dates: end: 201612

REACTIONS (2)
  - Pancreatic carcinoma stage IV [Unknown]
  - Thyroid cancer stage III [Unknown]

NARRATIVE: CASE EVENT DATE: 20040101
